FAERS Safety Report 19709311 (Version 1)
Quarter: 2021Q3

REPORT INFORMATION
  Report Type: Spontaneous
  Country: FR (occurrence: FR)
  Receive Date: 20210816
  Receipt Date: 20210816
  Transmission Date: 20211014
  Serious: Yes (Death)
  Sender: FDA-Public Use
  Company Number: FR-PFIZER INC-202101028116

PATIENT
  Age: 35 Year
  Sex: Male

DRUGS (5)
  1. ACAMPROSATE [Interacting]
     Active Substance: ACAMPROSATE
     Dosage: 363 MG, FOUR TIMES DAILY
  2. ZOPICLONE [Interacting]
     Active Substance: ZOPICLONE
     Dosage: 7.5 MG, DAILY
  3. PAROXETINE. [Interacting]
     Active Substance: PAROXETINE
     Dosage: 20 MG, 2X/DAY
  4. VENLAFAXINE HCL [Suspect]
     Active Substance: VENLAFAXINE HYDROCHLORIDE
     Dosage: 75 MG, 2X/DAY
  5. RISPERIDONE. [Interacting]
     Active Substance: RISPERIDONE
     Dosage: 2 MG, DAILY

REACTIONS (1)
  - Drug interaction [Fatal]
